FAERS Safety Report 8236484-0 (Version None)
Quarter: 2012Q1

REPORT INFORMATION
  Report Type: 
  Country: None (occurrence: None)
  Receive Date: 20120327
  Receipt Date: 20120319
  Transmission Date: 20120608
  Serious: Yes (Hospitalization)
  Sender: FDA-Public Use
  Company Number: US-BAYER-2011-122091

PATIENT
  Age: 20 Year
  Sex: Female
  Weight: 69.388 kg

DRUGS (5)
  1. YAZ [Suspect]
     Indication: CONTRACEPTION
     Dosage: UNK
     Route: 048
     Dates: start: 20090128, end: 20090907
  2. VICODIN [Concomitant]
  3. YAZ [Suspect]
     Indication: ACNE
  4. ACETAMINOPHEN W/ CODEINE [Concomitant]
     Dosage: UNK
     Dates: start: 20091207
  5. ORTHO TRI-CYCLEN [Concomitant]
     Dosage: UNK
     Dates: start: 20091207

REACTIONS (3)
  - GALLBLADDER DISORDER [None]
  - ABDOMINAL PAIN [None]
  - CHOLECYSTITIS CHRONIC [None]
